FAERS Safety Report 9159629 (Version 1)
Quarter: 2013Q1

REPORT INFORMATION
  Report Type: Spontaneous
  Country: US (occurrence: None)
  Receive Date: 20130312
  Receipt Date: 20130312
  Transmission Date: 20140127
  Serious: No
  Sender: FDA-Public Use
  Company Number: None

PATIENT
  Age: 58 Year
  Sex: Female
  Weight: 74.84 kg

DRUGS (6)
  1. LIPITOR [Suspect]
     Indication: BLOOD CHOLESTEROL INCREASED
     Dosage: 10MG QD PO
     Route: 048
     Dates: start: 20081110, end: 20121122
  2. LISINOPRIL [Concomitant]
  3. SYNTHROID [Concomitant]
  4. OMEPREZOLE [Concomitant]
  5. BABY ASA [Concomitant]
  6. CALCIUM [Concomitant]

REACTIONS (1)
  - Alopecia [None]
